FAERS Safety Report 7769128-2 (Version None)
Quarter: 2011Q3

REPORT INFORMATION
  Report Type: 
  Country: None (occurrence: None)
  Receive Date: 20110922
  Receipt Date: 20110103
  Transmission Date: 20111222
  Serious: No
  Sender: FDA-Public Use
  Company Number: US-ASTRAZENECA-2011SE00461

PATIENT
  Age: 45 Year
  Sex: Female
  Weight: 124.7 kg

DRUGS (9)
  1. SEROQUEL [Suspect]
     Indication: HEADACHE
     Route: 048
  2. SEROQUEL [Suspect]
     Indication: NAUSEA
     Route: 048
  3. BUPROPION HCL [Concomitant]
  4. OMEPRAZOLE [Concomitant]
  5. CITALOPRAM HYDROBROMIDE [Concomitant]
  6. LISINOPRIL AND HYDROCHLOROTHIAZIDE [Concomitant]
  7. SEROQUEL [Suspect]
     Route: 048
  8. SEROQUEL [Suspect]
     Route: 048
  9. GENERIC ADDERALL [Concomitant]

REACTIONS (5)
  - NAUSEA [None]
  - DRUG DOSE OMISSION [None]
  - ATTENTION DEFICIT/HYPERACTIVITY DISORDER [None]
  - HEADACHE [None]
  - DRUG INEFFECTIVE [None]
